FAERS Safety Report 23977110 (Version 3)
Quarter: 2024Q3

REPORT INFORMATION
  Report Type: Report from Study
  Country: US (occurrence: US)
  Receive Date: 20240614
  Receipt Date: 20240813
  Transmission Date: 20241017
  Serious: Yes (Hospitalization, Other)
  Sender: INCYTE
  Company Number: US-INCYTE CORPORATION-2024IN006229

PATIENT

DRUGS (15)
  1. JAKAFI [Suspect]
     Active Substance: RUXOLITINIB
     Indication: Polycythaemia vera
     Dosage: 5 MILLIGRAM
     Route: 065
     Dates: start: 20240503
  2. JAKAFI [Suspect]
     Active Substance: RUXOLITINIB
     Dosage: 5 MILLIGRAM, BID
     Route: 048
     Dates: start: 20240503
  3. JAKAFI [Suspect]
     Active Substance: RUXOLITINIB
     Dosage: 5MG TWO TABLETS
     Route: 065
     Dates: end: 20240522
  4. JAKAFI [Suspect]
     Active Substance: RUXOLITINIB
     Dosage: 10 MILLIGRAM, BID
     Route: 065
     Dates: start: 20240522
  5. JAKAFI [Suspect]
     Active Substance: RUXOLITINIB
     Dosage: 10 MILLIGRAM, QD
     Route: 065
     Dates: start: 20240605
  6. HYDROXYUREA [Concomitant]
     Active Substance: HYDROXYUREA
     Indication: Product used for unknown indication
     Route: 065
  7. FUROSEMIDE [Concomitant]
     Active Substance: FUROSEMIDE
     Indication: Product used for unknown indication
     Dosage: 40 MILLIGRAM
     Route: 065
  8. CALCITRIOL [Concomitant]
     Active Substance: CALCITRIOL
     Indication: Product used for unknown indication
     Dosage: 0.25 MICROGRAM
     Route: 065
  9. ATORVASTATIN CALCIUM [Concomitant]
     Active Substance: ATORVASTATIN CALCIUM
     Indication: Product used for unknown indication
     Dosage: 20 MILLIGRAM
     Route: 065
  10. SODIUM BICARBONATE [Concomitant]
     Active Substance: SODIUM BICARBONATE
     Indication: Product used for unknown indication
     Dosage: 650 MILLIGRAM
     Route: 065
  11. METOPROLOL SUCCINATE [Concomitant]
     Active Substance: METOPROLOL SUCCINATE
     Indication: Product used for unknown indication
     Route: 065
  12. ALLOPURINOL [Concomitant]
     Active Substance: ALLOPURINOL
     Indication: Product used for unknown indication
     Dosage: 100 MILLIGRAM
     Route: 065
  13. TAMSULOSIN HYDROCHLORIDE [Concomitant]
     Active Substance: TAMSULOSIN HYDROCHLORIDE
     Indication: Product used for unknown indication
     Dosage: 0.4 MILLIGRAM
     Route: 065
  14. DUTASTERIDE [Concomitant]
     Active Substance: DUTASTERIDE
     Indication: Product used for unknown indication
     Dosage: 0.5 MILLIGRAM
     Route: 065
  15. ELIQUIS [Concomitant]
     Active Substance: APIXABAN
     Indication: Product used for unknown indication
     Dosage: 2.5 MILLIGRAM
     Route: 065

REACTIONS (11)
  - Anaemia [Unknown]
  - Pulmonary oedema [Unknown]
  - Pain in jaw [Unknown]
  - Feeling abnormal [Unknown]
  - Asthenia [Unknown]
  - Ill-defined disorder [Unknown]
  - Gait inability [Unknown]
  - Quality of life decreased [Unknown]
  - Product availability issue [Unknown]
  - Weight increased [Unknown]
  - Dyspnoea [Unknown]
